FAERS Safety Report 7715467-0 (Version None)
Quarter: 2011Q3

REPORT INFORMATION
  Report Type: 
  Country: None (occurrence: None)
  Receive Date: 20110829
  Receipt Date: 20110824
  Transmission Date: 20111222
  Serious: Yes (Other)
  Sender: FDA-Public Use
  Company Number: US-SANOFI-AVENTIS-2011SA054582

PATIENT
  Age: 64 Year
  Sex: Male

DRUGS (3)
  1. METOPROLOL TARTRATE [Concomitant]
  2. MULTAQ [Suspect]
     Indication: ATRIAL FIBRILLATION
     Route: 048
     Dates: start: 20110601
  3. DABIGATRAN ETEXILATE [Concomitant]
     Indication: ANTICOAGULANT THERAPY

REACTIONS (2)
  - HEART RATE IRREGULAR [None]
  - ATRIAL FIBRILLATION [None]
